FAERS Safety Report 23737340 (Version 1)
Quarter: 2024Q2

REPORT INFORMATION
  Report Type: Spontaneous
  Country: GB (occurrence: GB)
  Receive Date: 20240412
  Receipt Date: 20240412
  Transmission Date: 20240715
  Serious: Yes (Hospitalization, Other)
  Sender: FDA-Public Use
  Company Number: GB-JNJFOC-20240362533

PATIENT
  Age: 44 Year
  Sex: Female
  Weight: 73 kg

DRUGS (10)
  1. LINEZOLID [Suspect]
     Active Substance: LINEZOLID
     Indication: Mycobacterial infection
     Dosage: 600 MILLIGRAM, ONCE A DAY
     Route: 048
     Dates: start: 20240202, end: 20240312
  2. AMIKACIN [Suspect]
     Active Substance: AMIKACIN
     Indication: Mycobacterial infection
     Dosage: UNK
     Route: 065
  3. BEDAQUILINE [Suspect]
     Active Substance: BEDAQUILINE
     Indication: Mycobacterial infection
     Dosage: 200 MILLIGRAM
     Route: 048
     Dates: start: 20240219, end: 20240312
  4. BEDAQUILINE [Suspect]
     Active Substance: BEDAQUILINE
     Dosage: 400 MILLIGRAM, ONCE A DAY
     Route: 048
     Dates: start: 20240219, end: 20240304
  5. CLOFAZIMINE [Suspect]
     Active Substance: CLOFAZIMINE
     Indication: Mycobacterial infection
     Dosage: UNK
     Route: 065
  6. DEXAMETHASONE [Concomitant]
     Active Substance: DEXAMETHASONE
     Indication: COVID-19
     Dosage: 6 MILLIGRAM, ONCE A DAY
     Route: 048
     Dates: start: 20240221, end: 20240301
  7. MEROPENEM [Concomitant]
     Active Substance: MEROPENEM
     Indication: Cystic fibrosis
     Dosage: 2 GRAM, 3 TIMES A DAY
     Route: 042
     Dates: start: 20240301, end: 20240305
  8. MEROPENEM [Concomitant]
     Active Substance: MEROPENEM
     Dosage: 1 GRAM, 3 TIMES A DAY
     Route: 042
     Dates: start: 20240307, end: 20240311
  9. MEROPENEM [Concomitant]
     Active Substance: MEROPENEM
     Dosage: 2 GRAM, 3 TIMES A DAY
     Route: 042
     Dates: start: 20240305, end: 20240307
  10. VABORBACTAM [Concomitant]
     Active Substance: VABORBACTAM
     Indication: Cystic fibrosis
     Dosage: 2 GRAM, 3 TIMES A DAY
     Route: 042
     Dates: start: 20240305, end: 20240307

REACTIONS (3)
  - Cystic fibrosis [Unknown]
  - Nausea [Unknown]
  - Alanine aminotransferase increased [Recovering/Resolving]

NARRATIVE: CASE EVENT DATE: 20240311
